FAERS Safety Report 16686389 (Version 1)
Quarter: 2019Q3

REPORT INFORMATION
  Report Type: Spontaneous
  Country: NO (occurrence: NO)
  Receive Date: 20190809
  Receipt Date: 20190809
  Transmission Date: 20191004
  Serious: Yes (Congenital Anomaly, Other)
  Sender: FDA-Public Use
  Company Number: NO-TEVA-2019-NO-1090676

PATIENT

DRUGS (2)
  1. LEVETIRACETAM. [Suspect]
     Active Substance: LEVETIRACETAM
     Indication: EPILEPSY
     Dosage: 1000 MG, DAILY
     Route: 064
  2. LEVETIRACETAM. [Suspect]
     Active Substance: LEVETIRACETAM
     Dosage: DOSE CHANGE IN 1ST TRIMISTER
     Route: 064
     Dates: end: 201410

REACTIONS (3)
  - Maternal exposure during pregnancy [Unknown]
  - Cytogenetic abnormality [Not Recovered/Not Resolved]
  - Laryngomalacia [Not Recovered/Not Resolved]
